FAERS Safety Report 7135771 (Version 7)
Quarter: 2013Q4

REPORT INFORMATION
  Report Type: Spontaneous
  Country: US (occurrence: US)
  Receive Date: 20030923
  Receipt Date: 20131209
  Transmission Date: 20140711
  Serious: Yes (Hospitalization)
  Sender: FDA-Public Use
  Company Number: US-BIOGENIDEC-178747

PATIENT
  Age: 52 Year
  Sex: Female

DRUGS (7)
  1. AVONEX [Suspect]
     Indication: MULTIPLE SCLEROSIS
     Route: 030
  2. AVONEX [Suspect]
     Indication: MULTIPLE SCLEROSIS
     Route: 030
     Dates: start: 200104, end: 20030613
  3. AVONEX [Suspect]
     Indication: MULTIPLE SCLEROSIS
     Route: 030
     Dates: start: 2003
  4. BETASERON [Concomitant]
     Dates: start: 199601, end: 200103
  5. COPAXONE [Concomitant]
     Dates: start: 200004, end: 200005
  6. PAXIL [Concomitant]
     Indication: DEPRESSION
  7. PREMARIN [Concomitant]
     Indication: HORMONE REPLACEMENT THERAPY

REACTIONS (20)
  - Drug eruption [Not Recovered/Not Resolved]
  - White blood cell count increased [Unknown]
  - Antinuclear antibody positive [Unknown]
  - Eosinophilia [Unknown]
  - Shift to the left [Unknown]
  - Lymphadenopathy [Unknown]
  - Dehydration [Unknown]
  - Histiocytic necrotising lymphadenitis [Unknown]
  - General symptom [Unknown]
  - Nausea [Unknown]
  - Pyrexia [Unknown]
  - Chills [Unknown]
  - Pain [Unknown]
  - Hypersensitivity [Recovered/Resolved]
  - Sinusitis [Not Recovered/Not Resolved]
  - Asthma [Unknown]
  - Splenomegaly [Unknown]
  - Systemic lupus erythematosus [Unknown]
  - Scar [Unknown]
  - Influenza like illness [Unknown]
